FAERS Safety Report 8576280-8 (Version None)
Quarter: 2012Q3

REPORT INFORMATION
  Report Type: 
  Country: None (occurrence: None)
  Receive Date: 20120807
  Receipt Date: 20120803
  Transmission Date: 20120928
  Serious: Yes (Other)
  Sender: FDA-Public Use
  Company Number: PL-ROCHE-1097170

PATIENT
  Sex: Female
  Weight: 56 kg

DRUGS (7)
  1. OLFEN [Concomitant]
  2. CALPEROS [Concomitant]
  3. BONIVA [Suspect]
     Indication: OSTEOPOROSIS
     Dosage: 3 MG/ML
     Route: 042
     Dates: start: 20120311
  4. APAP TAB [Concomitant]
  5. TRAMADOL HCL [Concomitant]
  6. PRESTARIUM (CZECH REPUBLIC) [Concomitant]
  7. LAMOTRIGINE [Concomitant]

REACTIONS (1)
  - FRACTURE [None]
